FAERS Safety Report 21226967 (Version 1)
Quarter: 2022Q3

REPORT INFORMATION
  Report Type: Spontaneous
  Country: FR (occurrence: FR)
  Receive Date: 20220818
  Receipt Date: 20220818
  Transmission Date: 20221027
  Serious: Yes (Other)
  Sender: FDA-Public Use
  Company Number: None

PATIENT
  Age: 39 Year
  Sex: Female
  Weight: 47 kg

DRUGS (3)
  1. SPRAVATO [Suspect]
     Active Substance: ESKETAMINE
     Indication: Major depression
     Dates: start: 20220726, end: 20220726
  2. OXYBUTYNIN [Concomitant]
     Active Substance: OXYBUTYNIN
  3. MILNACIPRAN [Concomitant]
     Active Substance: MILNACIPRAN

REACTIONS (3)
  - Near death experience [Recovered/Resolved]
  - Dreamy state [Recovered/Resolved]
  - Sedation [Recovered/Resolved]

NARRATIVE: CASE EVENT DATE: 20220726
